FAERS Safety Report 26045952 (Version 1)
Quarter: 2025Q4

REPORT INFORMATION
  Report Type: Spontaneous
  Country: AU (occurrence: AU)
  Receive Date: 20251114
  Receipt Date: 20251114
  Transmission Date: 20260117
  Serious: Yes (Other)
  Sender: RANBAXY
  Company Number: AU-SUN PHARMACEUTICAL INDUSTRIES LTD-2025R1-536019

PATIENT
  Age: 62 Year
  Sex: Male
  Weight: 74 kg

DRUGS (10)
  1. LENALIDOMIDE [Suspect]
     Active Substance: LENALIDOMIDE
     Indication: Follicular lymphoma refractory
     Dosage: 20 MILLIGRAM, QD
     Route: 048
     Dates: start: 20241210
  2. RITUXIMAB [Suspect]
     Active Substance: RITUXIMAB
     Indication: Follicular lymphoma refractory
     Dosage: 375 MILLIGRAM/KILOGRAM
     Route: 042
     Dates: start: 20241210, end: 20250401
  3. TAZVERIK [Suspect]
     Active Substance: TAZEMETOSTAT HYDROBROMIDE
     Indication: Follicular lymphoma refractory
     Dosage: 800 MILLIGRAM, BID
     Route: 048
     Dates: start: 20241210
  4. ASPIRIN [Concomitant]
     Active Substance: ASPIRIN
     Indication: Prophylaxis
     Dosage: 100 MILLIGRAM, QD
     Route: 048
     Dates: start: 20241210
  5. ACYCLOVIR [Concomitant]
     Active Substance: ACYCLOVIR
     Indication: Antiviral prophylaxis
     Dosage: 200 MILLIGRAM, QD
     Route: 048
     Dates: start: 20241210
  6. ALLOPURINOL [Concomitant]
     Active Substance: ALLOPURINOL
     Indication: Gout
     Dosage: 100 MILLIGRAM, QD
     Route: 048
     Dates: start: 20250304
  7. ESOMEPRAZOLE [Concomitant]
     Active Substance: ESOMEPRAZOLE
     Indication: Gastrooesophageal reflux disease
     Dosage: 20 MILLIGRAM
     Route: 048
     Dates: start: 20241211
  8. IBUPROFEN [Concomitant]
     Active Substance: IBUPROFEN
     Indication: Psoriatic arthropathy
     Dosage: 200 MILLIGRAM
     Route: 048
     Dates: start: 20241231
  9. METOCLOPRAMIDE [Concomitant]
     Active Substance: METOCLOPRAMIDE
     Indication: Prophylaxis of nausea and vomiting
     Dosage: 10 MILLIGRAM
     Route: 048
     Dates: start: 20241210
  10. COTRIMOXAZOLE [Concomitant]
     Active Substance: SULFAMETHOXAZOLE\TRIMETHOPRIM
     Indication: Antifungal prophylaxis
     Dosage: (1 TABLET, ONCE DAILY ORALLY ON MONDAYS, WEDNESDAYS, AND FRIDAYS)
     Route: 048
     Dates: start: 20241211

REACTIONS (1)
  - Neuroendocrine carcinoma metastatic [Not Recovered/Not Resolved]

NARRATIVE: CASE EVENT DATE: 20250815
